FAERS Safety Report 8153883-6 (Version None)
Quarter: 2012Q1

REPORT INFORMATION
  Report Type: 
  Country: None (occurrence: None)
  Receive Date: 20120221
  Receipt Date: 20120209
  Transmission Date: 20120608
  Serious: Yes (Death, Hospitalization, Disabling, Other)
  Sender: FDA-Public Use
  Company Number: US-ELI_LILLY_AND_COMPANY-US201112005829

PATIENT
  Age: 77 Year
  Sex: Female
  Weight: 33 kg

DRUGS (6)
  1. FORTEO [Suspect]
     Indication: OSTEOPOROSIS
     Dosage: 20 UG, QD
     Route: 058
     Dates: start: 20110314, end: 20110411
  2. OSCAL D                            /00944201/ [Concomitant]
  3. FENTANYL [Concomitant]
  4. LIDODERM [Concomitant]
  5. MIACALCIN [Concomitant]
  6. OXYCODONE HCL [Concomitant]

REACTIONS (2)
  - RESPIRATORY FAILURE [None]
  - QUADRIPLEGIA [None]
